FAERS Safety Report 16540570 (Version 1)
Quarter: 2019Q3

REPORT INFORMATION
  Report Type: Spontaneous
  Country: US (occurrence: US)
  Receive Date: 20190707
  Receipt Date: 20190707
  Transmission Date: 20191004
  Serious: Yes (Hospitalization, Disabling, Other)
  Sender: FDA-Public Use
  Company Number: None

PATIENT
  Age: 2 Year
  Sex: Female
  Weight: 14.4 kg

DRUGS (1)
  1. EQUATE EYE ALLERGY RELIEF DROPS [Suspect]
     Active Substance: NAPHAZOLINE HYDROCHLORIDE\PHENIRAMINE MALEATE
     Indication: HYPERSENSITIVITY
     Dosage: ?          QUANTITY:1 DROP(S);?
     Route: 047

REACTIONS (7)
  - Blepharitis [None]
  - Eye pruritus [None]
  - Madarosis [None]
  - Hordeolum [None]
  - Soft tissue disorder [None]
  - Swelling of eyelid [None]
  - Eye discharge [None]

NARRATIVE: CASE EVENT DATE: 20190613
